FAERS Safety Report 12762525 (Version 1)
Quarter: 2016Q3

REPORT INFORMATION
  Report Type: Spontaneous
  Country: GB (occurrence: GB)
  Receive Date: 20160920
  Receipt Date: 20160920
  Transmission Date: 20161109
  Serious: Yes (Hospitalization, Disabling, Other)
  Sender: FDA-Public Use
  Company Number: GB-PFIZER INC-2016431346

PATIENT
  Age: 55 Year
  Sex: Male

DRUGS (14)
  1. FENTANYL. [Suspect]
     Active Substance: FENTANYL
     Indication: SEDATION
     Dosage: 100 UG, UNK
     Route: 051
     Dates: start: 20140904, end: 20140904
  2. CHIROCAINE [Suspect]
     Active Substance: LEVOBUPIVACAINE HYDROCHLORIDE
     Indication: SEDATION
     Dosage: 13 ML, UNK
     Route: 051
     Dates: start: 20140904, end: 20140904
  3. NORMAL SALINE [Suspect]
     Active Substance: SODIUM CHLORIDE
     Indication: SEDATION
     Dosage: 5 MG, UNK
     Route: 051
     Dates: start: 20140904, end: 20140904
  4. CLONAZEPAM. [Concomitant]
     Active Substance: CLONAZEPAM
     Dosage: 2 MG, 2X/DAY
  5. GLUCOSAMINE SULPHATE [Concomitant]
     Active Substance: GLUCOSAMINE
     Dosage: 2 DF, 1X/DAY
  6. RANITIDINE. [Concomitant]
     Active Substance: RANITIDINE
     Dosage: 1-2 ONCE DAILY
  7. MIDAZOLAM [Suspect]
     Active Substance: MIDAZOLAM\MIDAZOLAM HYDROCHLORIDE
     Indication: SEDATION
     Dosage: 5 MG, UNK
     Route: 051
     Dates: start: 20140904, end: 20140904
  8. GABAPENTIN. [Concomitant]
     Active Substance: GABAPENTIN
     Dosage: PLUS EXTRA DOSE AT NIGHT.
  9. MORPHINE SULFATE. [Concomitant]
     Active Substance: MORPHINE SULFATE
     Indication: BREAKTHROUGH PAIN
     Dosage: 10MG/5ML
  10. LIDOCAINE. [Suspect]
     Active Substance: LIDOCAINE
     Indication: SEDATION
     Dosage: 30 MG, UNK
     Route: 051
     Dates: start: 20140904, end: 20140904
  11. NORMAL SALINE [Suspect]
     Active Substance: SODIUM CHLORIDE
     Dosage: UNK
     Route: 051
     Dates: start: 20140904, end: 20140904
  12. EPILIM [Concomitant]
     Active Substance: VALPROATE SODIUM
     Dosage: 100 MG, 1X/DAY
  13. TRIAMCINOLONE [Suspect]
     Active Substance: TRIAMCINOLONE
     Indication: SEDATION
     Dosage: 86 MG, UNK
     Route: 051
     Dates: start: 20140904, end: 20140904
  14. TRAMADOL. [Concomitant]
     Active Substance: TRAMADOL
     Dosage: ONE OR TWO 4 TIMES DAILY.

REACTIONS (30)
  - Eye pain [Unknown]
  - Headache [Unknown]
  - Discomfort [Unknown]
  - Facial paralysis [Unknown]
  - Hypoaesthesia oral [Unknown]
  - Ageusia [Unknown]
  - Amnesia [Not Recovered/Not Resolved]
  - Muscle twitching [Unknown]
  - Decreased appetite [Unknown]
  - Musculoskeletal stiffness [Unknown]
  - Photosensitivity reaction [Not Recovered/Not Resolved]
  - Circulatory collapse [Unknown]
  - Muscle spasms [Unknown]
  - Speech disorder [Unknown]
  - Erythema [Unknown]
  - Rash [Unknown]
  - Muscular weakness [Unknown]
  - Dysgeusia [Not Recovered/Not Resolved]
  - Dysgraphia [Unknown]
  - Ocular hyperaemia [Unknown]
  - Mydriasis [Unknown]
  - Hallucination [Unknown]
  - Nausea [Not Recovered/Not Resolved]
  - Dissociative amnesia [Unknown]
  - Loss of consciousness [Unknown]
  - Unresponsive to stimuli [Unknown]
  - Pain [Unknown]
  - Skin warm [Unknown]
  - Nightmare [Unknown]
  - Hemiparesis [Unknown]

NARRATIVE: CASE EVENT DATE: 20140905
